FAERS Safety Report 7532668-5 (Version None)
Quarter: 2011Q2

REPORT INFORMATION
  Report Type: 
  Country: None (occurrence: None)
  Receive Date: 20110608
  Receipt Date: 20110524
  Transmission Date: 20111010
  Serious: Yes (Hospitalization)
  Sender: FDA-Public Use
  Company Number: A0789083A

PATIENT
  Age: 51 Year
  Sex: Female
  Weight: 75.9 kg

DRUGS (17)
  1. AVANDIA [Suspect]
     Indication: DIABETES MELLITUS
     Dosage: 4MG TWICE PER DAY
     Route: 048
     Dates: start: 20030101
  2. ADVAIR DISKUS 100/50 [Concomitant]
  3. QUINAPRIL HCL [Concomitant]
  4. ACCUPRIL [Concomitant]
  5. OMEPRAZOLE [Concomitant]
  6. ACIPHEX [Concomitant]
  7. LOVASTATIN [Concomitant]
  8. TOPROL-XL [Concomitant]
  9. PLAVIX [Concomitant]
  10. ASPIRIN [Concomitant]
  11. FOSAMAX PLUS D [Concomitant]
  12. AVANDAMET [Suspect]
     Indication: DIABETES MELLITUS
     Route: 048
     Dates: start: 20040401
  13. METFORMIN HCL [Concomitant]
  14. METOPROLOL [Concomitant]
  15. ACIPHEX [Concomitant]
  16. NORVASC [Concomitant]
  17. LIPITOR [Concomitant]

REACTIONS (2)
  - MYOCARDIAL ISCHAEMIA [None]
  - CORONARY ARTERY DISEASE [None]
